FAERS Safety Report 10669584 (Version 1)
Quarter: 2014Q4

REPORT INFORMATION
  Report Type: Spontaneous
  Country: US (occurrence: US)
  Receive Date: 20141222
  Receipt Date: 20141222
  Transmission Date: 20150529
  Serious: No
  Sender: FDA-Public Use
  Company Number: US-SA-2014SA172055

PATIENT
  Age: 46 Year
  Sex: Female

DRUGS (3)
  1. LEXAPRO [Concomitant]
     Active Substance: ESCITALOPRAM OXALATE
  2. COPAXONE [Concomitant]
     Active Substance: GLATIRAMER ACETATE
  3. AUBAGIO [Suspect]
     Active Substance: TERIFLUNOMIDE
     Indication: MULTIPLE SCLEROSIS
     Route: 048
     Dates: start: 20140919

REACTIONS (1)
  - Enzyme level decreased [Unknown]

NARRATIVE: CASE EVENT DATE: 20141208
